FAERS Safety Report 4642365-1 (Version None)
Quarter: 2005Q2

REPORT INFORMATION
  Report Type: 
  Country: None (occurrence: None)
  Receive Date: 20050420
  Receipt Date: 20050411
  Transmission Date: 20051028
  Serious: Yes (Life-Threatening, Hospitalization, Other)
  Sender: FDA-Public Use
  Company Number: 2005-03-1395

PATIENT
  Age: 63 Year
  Sex: Male
  Weight: 60 kg

DRUGS (8)
  1. REBETOL [Suspect]
     Indication: HEPATITIS C
     Dosage: SEE IMAGE
     Route: 048
     Dates: start: 20040302, end: 20040329
  2. REBETOL [Suspect]
     Indication: HEPATITIS C
     Dosage: SEE IMAGE
     Route: 048
     Dates: start: 20040330, end: 20040921
  3. INTRON A [Suspect]
     Indication: HEPATITIS C
     Dosage: SEE IMAGE
     Route: 030
     Dates: start: 20040302, end: 20041213
  4. INTRON A [Suspect]
     Indication: HEPATITIS C
     Dosage: SEE IMAGE
     Route: 030
     Dates: start: 20041215, end: 20050222
  5. INTRON A [Suspect]
     Indication: HEPATITIS C
     Dosage: SEE IMAGE
     Route: 030
     Dates: start: 20050223, end: 20050311
  6. BETOPTIC [Concomitant]
  7. HYALURONATE SODIUM [Concomitant]
  8. OPHTHLAMIC SOLUTION EYE [Concomitant]

REACTIONS (9)
  - ANAEMIA [None]
  - ARTHRITIS [None]
  - DISSEMINATED INTRAVASCULAR COAGULATION [None]
  - ECZEMA NUMMULAR [None]
  - HAEMODIALYSIS [None]
  - ISCHAEMIC HEPATITIS [None]
  - METABOLIC ACIDOSIS [None]
  - PANCREATITIS ACUTE [None]
  - RENAL FAILURE ACUTE [None]
